FAERS Safety Report 25876071 (Version 1)
Quarter: 2025Q4

REPORT INFORMATION
  Report Type: Spontaneous
  Country: CN (occurrence: CN)
  Receive Date: 20251003
  Receipt Date: 20251003
  Transmission Date: 20260117
  Serious: Yes (Hospitalization, Other)
  Sender: DAIICHI
  Company Number: CN-DSJP-DS-2025-167020-CN

PATIENT
  Age: 97 Year
  Sex: Female
  Weight: 40 kg

DRUGS (2)
  1. EDOXABAN TOSYLATE [Suspect]
     Active Substance: EDOXABAN TOSYLATE
     Indication: Symptomatic treatment
     Dosage: 30 MG, QD
     Route: 048
     Dates: start: 20250223, end: 20250305
  2. EDOXABAN TOSYLATE [Suspect]
     Active Substance: EDOXABAN TOSYLATE
     Indication: Atrial fibrillation

REACTIONS (7)
  - Gastrointestinal haemorrhage [Recovered/Resolved]
  - Pneumonia [Unknown]
  - Cardiac failure chronic [Unknown]
  - Arteriosclerosis coronary artery [Unknown]
  - Cardiac dysfunction [Unknown]
  - Cardiomegaly [Unknown]
  - Pulmonary arterial hypertension [Unknown]

NARRATIVE: CASE EVENT DATE: 20250302
